FAERS Safety Report 8295204-4 (Version None)
Quarter: 2012Q2

REPORT INFORMATION
  Report Type: 
  Country: None (occurrence: None)
  Receive Date: 20120418
  Receipt Date: 20120412
  Transmission Date: 20120825
  Serious: Yes (Other)
  Sender: FDA-Public Use
  Company Number: US-BAXTER-2012BAX002895

PATIENT
  Age: 26 Year
  Sex: Male
  Weight: 77.18 kg

DRUGS (1)
  1. GAMMAGARD LIQUID [Suspect]
     Route: 065

REACTIONS (3)
  - ASTHENIA [None]
  - HAEMOLYSIS [None]
  - PALLOR [None]
